FAERS Safety Report 8911810 (Version 1)
Quarter: 2012Q4

REPORT INFORMATION
  Report Type: 
  Country: US (occurrence: US)
  Receive Date: 20121116
  Receipt Date: 20121116
  Transmission Date: 20130627
  Serious: Yes (Other)
  Sender: FDA-Public Use
  Company Number: US-PFIZER INC-2012285370

PATIENT
  Sex: Female

DRUGS (4)
  1. LOPID [Suspect]
     Dosage: UNK
  2. PREMARIN [Suspect]
     Dosage: UNK
  3. LIPITOR [Suspect]
     Dosage: UNK
  4. GLUCOTROL XL [Suspect]
     Dosage: UNK

REACTIONS (6)
  - Diabetes mellitus [Unknown]
  - Osteoporosis [Unknown]
  - Uterine disorder [Unknown]
  - Pancreatic disorder [Unknown]
  - Bronchitis [Unknown]
  - Influenza [Unknown]
